FAERS Safety Report 6931189-8 (Version None)
Quarter: 2010Q3

REPORT INFORMATION
  Report Type: 
  Country: None (occurrence: None)
  Receive Date: 20100813
  Receipt Date: 20100728
  Transmission Date: 20110219
  Serious: Yes (Other)
  Sender: FDA-Public Use
  Company Number: ACO_01602_2010

PATIENT
  Age: 50 Year
  Sex: Female
  Weight: 69.4003 kg

DRUGS (8)
  1. AMPYRA [Suspect]
     Indication: MULTIPLE SCLEROSIS
     Dosage: (10 MG BID ORAL)
     Route: 048
     Dates: start: 20100603, end: 20100626
  2. SOLU-MEDROL [Suspect]
     Indication: PRODUCT USED FOR UNKNOWN INDICATION
     Dosage: (DF INTRAVENOUS (NOT OTHERWISE SPECIFIED))
     Route: 042
     Dates: start: 20100625, end: 20100601
  3. NEURONTIN [Concomitant]
  4. ZYRTEC [Concomitant]
  5. ALLEGRA-D /01367401/ [Concomitant]
  6. CITALOPRAM HYDROBROMIDE [Concomitant]
  7. CALCIUM [Concomitant]
  8. VITAMIN TAB [Concomitant]

REACTIONS (4)
  - CARDIAC FLUTTER [None]
  - DIZZINESS [None]
  - EXTRASYSTOLES [None]
  - HYPOAESTHESIA [None]
